FAERS Safety Report 19879645 (Version 1)
Quarter: 2021Q3

REPORT INFORMATION
  Report Type: Spontaneous
  Country: IT (occurrence: IT)
  Receive Date: 20210924
  Receipt Date: 20210924
  Transmission Date: 20211014
  Serious: Yes (Other)
  Sender: FDA-Public Use
  Company Number: IT-PFIZER INC-202101193097

PATIENT
  Age: 59 Year
  Sex: Male

DRUGS (2)
  1. EPIRUBICIN HCL [Suspect]
     Active Substance: EPIRUBICIN HYDROCHLORIDE
     Indication: SOFT TISSUE SARCOMA
     Dosage: 114 MG, CYCLIC
     Route: 042
     Dates: start: 20210419
  2. IFOSFAMIDE. [Suspect]
     Active Substance: IFOSFAMIDE
     Indication: SOFT TISSUE SARCOMA
     Dosage: 5700 MG, CYCLIC
     Route: 042
     Dates: start: 20210419

REACTIONS (3)
  - Urinary tract infection [Recovering/Resolving]
  - Neutropenia [Recovering/Resolving]
  - Leukocyturia [Recovering/Resolving]

NARRATIVE: CASE EVENT DATE: 20210812
